FAERS Safety Report 8758175 (Version 2)
Quarter: 2012Q4

REPORT INFORMATION
  Report Type: Report from Study
  Country: DE (occurrence: DE)
  Receive Date: 20120828
  Receipt Date: 20120913
  Transmission Date: 20130627
  Serious: Yes (Hospitalization)
  Sender: FDA-Public Use
  Company Number: DE-VERTEX PHARMACEUTICAL INC.-2012-019800

PATIENT
  Age: 48 Year
  Sex: Male
  Weight: 51 kg

DRUGS (4)
  1. VX-950 [Suspect]
     Indication: HEPATITIS C
     Dosage: 2250 mg, qd
     Route: 048
     Dates: start: 20120123, end: 20120423
  2. PEGASYS [Suspect]
     Indication: HEPATITIS C
     Dosage: 180 ?g, weekly
     Route: 058
     Dates: start: 20120123
  3. RIBAVIRIN [Suspect]
     Indication: HEPATITIS C
     Dosage: 1000 mg, qd
     Route: 048
     Dates: start: 20120123
  4. ATRIPLA [Concomitant]
     Indication: HIV INFECTION
     Dosage: Dosage Form: Tablet
     Route: 048
     Dates: start: 20080424

REACTIONS (1)
  - Anal cancer [Recovered/Resolved]
